FAERS Safety Report 23725647 (Version 2)
Quarter: 2024Q2

REPORT INFORMATION
  Report Type: Spontaneous
  Country: JP (occurrence: JP)
  Receive Date: 20240410
  Receipt Date: 20240520
  Transmission Date: 20240716
  Serious: Yes (Other)
  Sender: FDA-Public Use
  Company Number: JP-CORZA MEDICAL GMBH-2024-JP-002244

PATIENT
  Age: 80 Year
  Sex: Male
  Weight: 60.5 kg

DRUGS (2)
  1. TACHOSIL [Suspect]
     Active Substance: FIBRINOGEN HUMAN\THROMBIN HUMAN
     Indication: Ventricle rupture
     Dosage: UNK
     Route: 065
     Dates: start: 20230711, end: 20230711
  2. CELLULOSE, OXIDIZED\DEVICE [Suspect]
     Active Substance: CELLULOSE, OXIDIZED\DEVICE
     Indication: Ventricle rupture
     Route: 065

REACTIONS (3)
  - Bacteraemia [Unknown]
  - Pleural effusion [Unknown]
  - Product adhesion issue [Recovering/Resolving]

NARRATIVE: CASE EVENT DATE: 20230711
